FAERS Safety Report 9790180 (Version 2)
Quarter: 2014Q1

REPORT INFORMATION
  Report Type: Spontaneous
  Country: US (occurrence: US)
  Receive Date: 20131231
  Receipt Date: 20140324
  Transmission Date: 20141002
  Serious: No
  Sender: FDA-Public Use
  Company Number: US-009507513-1312USA008829

PATIENT
  Age: 66 Year
  Sex: Male
  Weight: 90.7 kg

DRUGS (1)
  1. OXYTROL FOR WOMEN [Suspect]
     Indication: URINARY INCONTINENCE
     Dosage: UNK, UNKNOWN
     Route: 062
     Dates: start: 20131114, end: 20131212

REACTIONS (3)
  - Rash erythematous [Recovered/Resolved]
  - Application site pruritus [Recovered/Resolved]
  - Off label use [Unknown]
